FAERS Safety Report 10726174 (Version 1)
Quarter: 2015Q1

REPORT INFORMATION
  Report Type: Spontaneous
  Country: US (occurrence: None)
  Receive Date: 20150120
  Receipt Date: 20150120
  Transmission Date: 20150721
  Serious: Yes (Hospitalization)
  Sender: FDA-Public Use
  Company Number: None

PATIENT
  Age: 60 Year
  Sex: Male
  Weight: 133 kg

DRUGS (3)
  1. FLUDARABINE PHOSPHATE. [Suspect]
     Active Substance: FLUDARABINE PHOSPHATE
     Dates: end: 20150108
  2. RITUXIMAB (MOAB C2B8 ANTI CD20, CHIMERIC) [Suspect]
     Active Substance: RITUXIMAB
     Dates: end: 20150106
  3. CYCLOPHOPHAMIDE [Suspect]
     Active Substance: CYCLOPHOSPHAMIDE
     Dates: end: 20150108

REACTIONS (1)
  - Chest pain [None]

NARRATIVE: CASE EVENT DATE: 20150114
